FAERS Safety Report 4437866-5 (Version None)
Quarter: 2004Q3

REPORT INFORMATION
  Report Type: 
  Country: None (occurrence: None)
  Receive Date: 20040827
  Receipt Date: 20040820
  Transmission Date: 20050211
  Serious: Yes (Hospitalization)
  Sender: FDA-Public Use
  Company Number: 2004-08-1162

PATIENT
  Age: 62 Year
  Sex: Male

DRUGS (5)
  1. REBETOL [Suspect]
     Indication: HEPATITIS C
     Dosage: 6 MU INTRAMUSCULAR
     Route: 030
     Dates: start: 20020905, end: 20021008
  2. INTRON A [Suspect]
     Indication: HEPATITIS C
     Dosage: 800 MG ORAL
     Route: 048
     Dates: start: 20020905, end: 20021008
  3. INDACIN SUPPOSITORIES [Concomitant]
  4. DEPAS [Concomitant]
  5. FERON INJECTABLE POWDER [Suspect]
     Dates: start: 20021010, end: 22021010

REACTIONS (3)
  - CONDITION AGGRAVATED [None]
  - INSOMNIA [None]
  - MYOSITIS [None]
